FAERS Safety Report 10036200 (Version 3)
Quarter: 2014Q2

REPORT INFORMATION
  Report Type: Spontaneous
  Country: US (occurrence: US)
  Receive Date: 20140325
  Receipt Date: 20140508
  Transmission Date: 20141212
  Serious: Yes (Hospitalization, Other)
  Sender: FDA-Public Use
  Company Number: US-PFIZER INC-2014083472

PATIENT
  Age: 68 Year
  Sex: Male

DRUGS (4)
  1. DEPO-MEDROL [Suspect]
     Dosage: 80 MG, UNK
     Dates: start: 20140314
  2. DEPO-MEDROL [Suspect]
     Dosage: 80 MG, UNK
  3. DEPO-MEDROL [Suspect]
     Dosage: 80 MG, UNK
  4. DEPO-MEDROL [Suspect]
     Dosage: 80 MG, UNK

REACTIONS (6)
  - Pyrexia [Unknown]
  - Chills [Unknown]
  - Clostridial infection [Recovering/Resolving]
  - Injection site abscess [Unknown]
  - White blood cell count increased [Unknown]
  - Poor quality drug administered [Unknown]
